FAERS Safety Report 6208041-9 (Version None)
Quarter: 2009Q2

REPORT INFORMATION
  Report Type: 
  Country: None (occurrence: None)
  Receive Date: 20090529
  Receipt Date: 20090310
  Transmission Date: 20091009
  Serious: No
  Sender: FDA-Public Use
  Company Number: US-KINGPHARMUSA00001-K200900266

PATIENT
  Age: 26 Year
  Sex: Female

DRUGS (1)
  1. FLECTOR [Suspect]
     Indication: BACK PAIN
     Dosage: 1 PATCH, Q 12 HOURS
     Route: 061
     Dates: start: 20090310

REACTIONS (2)
  - MALAISE [None]
  - SKIN BURNING SENSATION [None]
